FAERS Safety Report 18512295 (Version 1)
Quarter: 2020Q4

REPORT INFORMATION
  Report Type: Spontaneous
  Country: US (occurrence: US)
  Receive Date: 20201117
  Receipt Date: 20201117
  Transmission Date: 20210114
  Serious: Yes (Death)
  Sender: FDA-Public Use
  Company Number: US-PFIZER INC-2020450810

PATIENT
  Sex: Male

DRUGS (3)
  1. VALIUM [Suspect]
     Active Substance: DIAZEPAM
     Dosage: UNK
  2. LORTAB [HYDROCODONE BITARTRATE;PARACETAMOL;PROMETHAZINE HYDROCHLORIDE] [Suspect]
     Active Substance: ACETAMINOPHEN\HYDROCODONE\PROMETHAZINE
     Dosage: UNK
  3. XANAX [Suspect]
     Active Substance: ALPRAZOLAM
     Dosage: UNK

REACTIONS (1)
  - Death [Fatal]
